FAERS Safety Report 10663092 (Version 1)
Quarter: 2014Q4

REPORT INFORMATION
  Report Type: Spontaneous
  Country: US (occurrence: US)
  Receive Date: 20141218
  Receipt Date: 20141218
  Transmission Date: 20150529
  Serious: No
  Sender: FDA-Public Use
  Company Number: US-GLAXOSMITHKLINE-A1090521A

PATIENT

DRUGS (8)
  1. MEKINIST [Suspect]
     Active Substance: TRAMETINIB DIMETHYL SULFOXIDE
     Indication: MALIGNANT MELANOMA
     Dosage: 2 MG PER DAY
     Route: 048
     Dates: start: 20140825
  2. METOPROLOL [Concomitant]
     Active Substance: METOPROLOL
  3. OXYCODONE [Concomitant]
     Active Substance: OXYCODONE
  4. ESCITALOPRAM [Concomitant]
     Active Substance: ESCITALOPRAM OXALATE
  5. TAFINLAR [Suspect]
     Active Substance: DABRAFENIB MESYLATE
     Indication: MALIGNANT MELANOMA
     Dosage: 75 MG TWICE PER DAY, TOTAL DAILY DOSE OF 150 MG
     Route: 048
     Dates: start: 20140825
  6. LEVETIRACETAM. [Concomitant]
     Active Substance: LEVETIRACETAM
  7. DIAZEPAM. [Concomitant]
     Active Substance: DIAZEPAM
  8. DEXAMETHASONE. [Concomitant]
     Active Substance: DEXAMETHASONE

REACTIONS (1)
  - Pyrexia [Recovered/Resolved]
